FAERS Safety Report 14485787 (Version 2)
Quarter: 2018Q1

REPORT INFORMATION
  Report Type: Spontaneous
  Country: GB (occurrence: GB)
  Receive Date: 20180205
  Receipt Date: 20180206
  Transmission Date: 20180509
  Serious: Yes (Other)
  Sender: FDA-Public Use
  Company Number: GB-DSJP-DSE-2018-103374

PATIENT

DRUGS (1)
  1. EDOXABAN [Suspect]
     Active Substance: EDOXABAN TOSYLATE
     Indication: EMBOLISM VENOUS
     Dosage: 60 MG, UNK
     Route: 048
     Dates: start: 20171212, end: 20180102

REACTIONS (4)
  - Headache [Unknown]
  - Back pain [Unknown]
  - Rash macular [Unknown]
  - Dyspepsia [Unknown]
